FAERS Safety Report 13675207 (Version 1)
Quarter: 2017Q2

REPORT INFORMATION
  Report Type: Spontaneous
  Country: GB (occurrence: GB)
  Receive Date: 20170621
  Receipt Date: 20170621
  Transmission Date: 20170830
  Serious: Yes (Other)
  Sender: FDA-Public Use
  Company Number: PHFR2017GB004488

PATIENT

DRUGS (3)
  1. RAMIPRIL. [Suspect]
     Active Substance: RAMIPRIL
     Indication: BLOOD PRESSURE ABNORMAL
     Dosage: 1.25 MG, UNK
     Route: 065
  2. INSULIN PORCINE [Concomitant]
     Active Substance: INSULIN PORK\INSULIN PURIFIED PORK
     Route: 065
     Dates: start: 1979, end: 1985
  3. INSULIN PORCINE [Concomitant]
     Active Substance: INSULIN PORK\INSULIN PURIFIED PORK
     Indication: TYPE 1 DIABETES MELLITUS
     Route: 065
     Dates: start: 1994

REACTIONS (8)
  - Muscle spasms [Unknown]
  - Nasal congestion [Unknown]
  - Myalgia [Unknown]
  - Lower limb fracture [Unknown]
  - Balance disorder [Unknown]
  - Fall [Unknown]
  - Pain in extremity [Unknown]
  - Auditory disorder [Unknown]
